FAERS Safety Report 9219972 (Version 1)
Quarter: 2013Q2

REPORT INFORMATION
  Report Type: Report from Study
  Country: DE (occurrence: DE)
  Receive Date: 20130409
  Receipt Date: 20130409
  Transmission Date: 20140414
  Serious: Yes (Life-Threatening, Hospitalization)
  Sender: FDA-Public Use
  Company Number: DE-AMGEN-DEUCT2010008495

PATIENT
  Age: 73 Year
  Sex: Female
  Weight: 83 kg

DRUGS (10)
  1. ETANERCEPT [Suspect]
     Indication: PSORIATIC ARTHROPATHY
     Dosage: 50 MG, QWK
     Route: 058
     Dates: start: 20091202, end: 20101027
  2. ETANERCEPT [Suspect]
     Indication: ARTHRITIS
     Dosage: UNK
  3. MELOXICAM [Concomitant]
     Indication: PSORIATIC ARTHROPATHY
     Dosage: 7.5 MG TO15 MG, DAILY
     Route: 048
     Dates: start: 20090105, end: 20101108
  4. MELOXICAM [Concomitant]
     Indication: OSTEOARTHRITIS
     Dosage: 7.5 MG TO15 MG, DAILY
     Route: 048
     Dates: start: 200009
  5. L-THYROXIN [Concomitant]
     Indication: HYPOTHYROIDISM
     Dosage: 100 UG, DAILY
     Route: 048
     Dates: start: 20050204
  6. L-THYROXIN [Concomitant]
     Indication: AUTOIMMUNE THYROIDITIS
  7. APROVEL [Concomitant]
     Indication: HYPERTENSION
     Dosage: 150 MG DAILY
     Route: 048
     Dates: start: 200504, end: 20070723
  8. APROVEL [Concomitant]
     Indication: MITRAL VALVE INCOMPETENCE
     Dosage: 300 MG, DAILY
     Dates: start: 20071024
  9. VIGANTOLETTEN [Concomitant]
     Indication: OSTEOPENIA
     Dosage: 1000 IU, DAILY
     Dates: start: 200902
  10. CALCIUM [Concomitant]
     Indication: OSTEOPENIA
     Dosage: 800 MG, DAILY
     Dates: start: 200902

REACTIONS (1)
  - Adenocarcinoma gastric [Not Recovered/Not Resolved]
